FAERS Safety Report 6252925-2 (Version None)
Quarter: 2009Q3

REPORT INFORMATION
  Report Type: 
  Country: None (occurrence: None)
  Receive Date: 20090701
  Receipt Date: 20090624
  Transmission Date: 20100115
  Serious: Yes (Other)
  Sender: FDA-Public Use
  Company Number: A0793532A

PATIENT
  Age: 36 Year
  Sex: Male

DRUGS (2)
  1. FLOVENT [Suspect]
     Indication: DRUG USE FOR UNKNOWN INDICATION
     Dosage: 220MCG TWICE PER DAY
     Route: 055
     Dates: start: 20090602, end: 20090616
  2. ZYRTEC [Concomitant]

REACTIONS (2)
  - AGEUSIA [None]
  - ANOSMIA [None]
